FAERS Safety Report 18258897 (Version 1)
Quarter: 2020Q3

REPORT INFORMATION
  Report Type: Spontaneous
  Country: US (occurrence: US)
  Receive Date: 20200911
  Receipt Date: 20200911
  Transmission Date: 20201103
  Serious: Yes (Hospitalization)
  Sender: FDA-Public Use
  Company Number: US-SHIRE-US202029093

PATIENT
  Age: 73 Year
  Sex: Female
  Weight: 108.84 kg

DRUGS (1)
  1. KALBITOR [Suspect]
     Active Substance: ECALLANTIDE
     Indication: IMMUNE SYSTEM DISORDER
     Dosage: 10 MILLIGRAM PER MILLILITRE, AS REQ^D
     Route: 065
     Dates: start: 20140110

REACTIONS (1)
  - Hereditary angioedema [Unknown]

NARRATIVE: CASE EVENT DATE: 20200902
